FAERS Safety Report 6196795-X (Version None)
Quarter: 2009Q2

REPORT INFORMATION
  Report Type: 
  Country: None (occurrence: None)
  Receive Date: 20090520
  Receipt Date: 20090513
  Transmission Date: 20091009
  Serious: Yes (Other)
  Sender: FDA-Public Use
  Company Number: PHHY2009BR19142

PATIENT
  Sex: Female

DRUGS (1)
  1. DIOVAN [Suspect]
     Indication: HYPERTENSION
     Dosage: 1 DF, QD
     Route: 048

REACTIONS (5)
  - HYPERTENSION [None]
  - NERVOUSNESS [None]
  - POLLAKIURIA [None]
  - URINARY TRACT INFECTION [None]
  - URINE ODOUR ABNORMAL [None]
